FAERS Safety Report 7199980-3 (Version None)
Quarter: 2010Q4

REPORT INFORMATION
  Report Type: 
  Country: None (occurrence: None)
  Receive Date: 20101228
  Receipt Date: 20101221
  Transmission Date: 20110411
  Serious: Yes (Other)
  Sender: FDA-Public Use
  Company Number: US-PFIZER INC-2010036986

PATIENT
  Sex: Male
  Weight: 79.3 kg

DRUGS (2)
  1. DILANTIN [Suspect]
     Indication: PROPHYLAXIS
     Dosage: 100 MG, 3X/DAY
     Dates: start: 20010412
  2. DILANTIN [Suspect]
     Indication: CONVULSION
     Dosage: 200 MG, 2X/DAY
     Dates: start: 20010420

REACTIONS (1)
  - STEVENS-JOHNSON SYNDROME [None]
